FAERS Safety Report 7900833-0 (Version None)
Quarter: 2011Q4

REPORT INFORMATION
  Report Type: 
  Country: None (occurrence: None)
  Receive Date: 20111108
  Receipt Date: 20111108
  Transmission Date: 20120403
  Serious: Yes (Hospitalization)
  Sender: FDA-Public Use
  Company Number: None

PATIENT
  Age: 28 Year
  Sex: Female
  Weight: 51 kg

DRUGS (1)
  1. HUMIRA [Suspect]
     Indication: CROHN'S DISEASE
     Dosage: 160MG, 80MG
     Route: 058
     Dates: start: 20110808, end: 20110905

REACTIONS (4)
  - SYSTEMIC LUPUS ERYTHEMATOSUS [None]
  - ERYTHEMA [None]
  - RASH [None]
  - OEDEMA PERIPHERAL [None]
